FAERS Safety Report 8821493 (Version 1)
Quarter: 2012Q4

REPORT INFORMATION
  Report Type: 
  Country: CN (occurrence: CN)
  Receive Date: 20121002
  Receipt Date: 20121002
  Transmission Date: 20130627
  Serious: Yes (Other)
  Sender: FDA-Public Use
  Company Number: CN-ELI_LILLY_AND_COMPANY-CN201209007726

PATIENT
  Age: 38 Year
  Sex: Female

DRUGS (3)
  1. PROZAC [Suspect]
     Indication: DEPRESSION
     Dosage: 1 DF, qd
     Route: 048
  2. OLANZAPINE [Concomitant]
     Dosage: 1 DF, each evening
  3. DIAZEPAM [Concomitant]
     Dosage: 1 DF, each evening

REACTIONS (2)
  - Paralysis [Not Recovered/Not Resolved]
  - Insomnia [Not Recovered/Not Resolved]
